FAERS Safety Report 13937421 (Version 1)
Quarter: 2017Q3

REPORT INFORMATION
  Report Type: Report from Study
  Country: US (occurrence: US)
  Receive Date: 20170905
  Receipt Date: 20170905
  Transmission Date: 20171127
  Serious: Yes (Hospitalization)
  Sender: FDA-Public Use
  Company Number: US-BAYER-2017-162736

PATIENT
  Age: 61 Year
  Sex: Male

DRUGS (1)
  1. NEXAVAR [Suspect]
     Active Substance: SORAFENIB
     Indication: HEPATOCELLULAR CARCINOMA
     Dosage: 200 MG EVERY 48 HOURS
     Route: 048
     Dates: start: 201707

REACTIONS (7)
  - Off label use [None]
  - Adverse drug reaction [Unknown]
  - Vascular rupture [Recovered/Resolved]
  - Oedema peripheral [Unknown]
  - Contusion [Unknown]
  - Lower gastrointestinal haemorrhage [Recovered/Resolved]
  - Skin fragility [Unknown]

NARRATIVE: CASE EVENT DATE: 201708
